FAERS Safety Report 7329057-5 (Version None)
Quarter: 2011Q1

REPORT INFORMATION
  Report Type: 
  Country: None (occurrence: None)
  Receive Date: 20110303
  Receipt Date: 20110224
  Transmission Date: 20110831
  Serious: Yes (Hospitalization)
  Sender: FDA-Public Use
  Company Number: US-GENZYME-CAMP-1001329

PATIENT
  Sex: Female

DRUGS (6)
  1. CAMPATH [Suspect]
     Dosage: 12 MG, QD
     Route: 042
     Dates: start: 20090319, end: 20090320
  2. METHYLPREDNISOLONE [Concomitant]
     Indication: MULTIPLE SCLEROSIS
     Dosage: 1.0 G, QDX3
     Route: 042
     Dates: start: 20090316, end: 20090318
  3. CAMPATH [Suspect]
     Indication: MULTIPLE SCLEROSIS
     Dosage: 12 MG, QD
     Route: 042
     Dates: start: 20090316, end: 20090317
  4. METHYLPREDNISOLONE [Concomitant]
     Dosage: 1.0 G, QDX3
     Route: 042
     Dates: start: 20100316, end: 20100318
  5. CAMPATH [Suspect]
     Dosage: 12 MG, QDX3
     Route: 042
     Dates: start: 20100316, end: 20100318
  6. CAMPATH [Suspect]
     Dosage: 12 MG, QD
     Route: 042
     Dates: start: 20090402, end: 20090402

REACTIONS (1)
  - THROMBOCYTOPENIA [None]
